FAERS Safety Report 19408446 (Version 1)
Quarter: 2021Q2

REPORT INFORMATION
  Report Type: Report from Study
  Country: CA (occurrence: CA)
  Receive Date: 20210612
  Receipt Date: 20210612
  Transmission Date: 20210717
  Serious: Yes (Other)
  Sender: FDA-Public Use
  Company Number: CA-TEVA-2021-CA-1919564

PATIENT
  Age: 36 Year
  Sex: Female

DRUGS (1)
  1. COPAXONE [Suspect]
     Active Substance: GLATIRAMER ACETATE
     Indication: MULTIPLE SCLEROSIS
     Route: 065
     Dates: start: 20210517

REACTIONS (10)
  - Chest discomfort [Unknown]
  - Adverse drug reaction [Unknown]
  - Oropharyngeal discomfort [Unknown]
  - Feeling hot [Unknown]
  - Toothache [Unknown]
  - Product administered at inappropriate site [Unknown]
  - Dental restoration failure [Unknown]
  - Palpitations [Unknown]
  - Headache [Not Recovered/Not Resolved]
  - Flushing [Unknown]

NARRATIVE: CASE EVENT DATE: 2021
